FAERS Safety Report 8772917 (Version 3)
Quarter: 2012Q4

REPORT INFORMATION
  Report Type: Report from Study
  Country: HU (occurrence: HU)
  Receive Date: 20120907
  Receipt Date: 20120918
  Transmission Date: 20130627
  Serious: Yes (Death)
  Sender: FDA-Public Use
  Company Number: HU-CELGENEUS-076-21880-12090068

PATIENT
  Age: 58 Year
  Sex: Female
  Weight: 74 kg

DRUGS (37)
  1. REVLIMID [Suspect]
     Indication: MULTIPLE MYELOMA
     Dosage: 25 Milligram
     Route: 048
     Dates: start: 20111128, end: 20111218
  2. REVLIMID [Suspect]
     Dosage: 25 Milligram
     Route: 048
     Dates: start: 20120814, end: 20120821
  3. DEXAMETHASONE [Suspect]
     Indication: MULTIPLE MYELOMA
     Dosage: 40 Milligram
     Route: 048
     Dates: start: 20111128, end: 20111219
  4. DEXAMETHASONE [Suspect]
     Route: 048
     Dates: start: 20120814, end: 20120821
  5. DEXAMETHASONE [Suspect]
     Dosage: 40 Milligram
     Route: 041
     Dates: start: 20120823, end: 20120826
  6. CARFILZOMIB [Suspect]
     Indication: MULTIPLE MYELOMA
     Dosage: 37 Milligram
     Route: 065
     Dates: start: 20111128, end: 20111129
  7. CARFILZOMIB [Suspect]
     Dosage: 50
     Route: 065
     Dates: start: 20111205, end: 20111206
  8. CARFILZOMIB [Suspect]
     Route: 065
     Dates: start: 20120717, end: 20120801
  9. CARFILZOMIB [Suspect]
     Dosage: 37 Milligram
     Route: 065
     Dates: start: 20111212, end: 20111213
  10. CARFILZOMIB [Suspect]
     Route: 065
     Dates: start: 20111227, end: 20120111
  11. CARFILZOMIB [Suspect]
     Dosage: 50 Milligram
     Route: 065
     Dates: start: 20120814, end: 20120815
  12. ACC 200 [Concomitant]
     Indication: COUGHING
     Dosage: 6 Gram
     Route: 048
     Dates: start: 20120218
  13. ASPIRIN PROTECT [Concomitant]
     Indication: ANTICOAGULANT THERAPY
     Dosage: 100 Milligram
     Route: 048
     Dates: start: 20111127, end: 20120828
  14. CIFRAN [Concomitant]
     Indication: ANTIBIOTIC PROPHYLAXIS
     Dosage: 500 Milligram
     Route: 048
     Dates: start: 20111127
  15. CONTROLOC [Concomitant]
     Indication: HYPERACIDITY
     Dosage: 80 Milligram
     Route: 048
     Dates: start: 20111108
  16. COVIOGAL [Concomitant]
     Indication: HYPERTENSION
     Dosage: 5 Milligram
     Route: 048
     Dates: start: 200501
  17. KALDYUM [Concomitant]
     Indication: HYPOKALAEMIA
     Dosage: 3 Gram
     Route: 048
     Dates: start: 20111108
  18. LACIPIL [Concomitant]
     Indication: HYPERTENSION
     Dosage: 4 Milligram
     Route: 048
     Dates: start: 200501
  19. MILURIT [Concomitant]
     Indication: HYPERURICAEMIA
     Dosage: 300 Milligram
     Route: 048
     Dates: start: 20111117
  20. MILURIT [Concomitant]
     Route: 048
     Dates: start: 20120823, end: 20120902
  21. REFLUXON [Concomitant]
     Indication: PROPHYLAXIS
     Route: 048
     Dates: start: 20111127, end: 20120902
  22. TAVANIC [Concomitant]
     Indication: FEVER
     Dosage: 500 Milligram
     Route: 048
     Dates: start: 20120218
  23. TELVIRAN [Concomitant]
     Indication: ANTIVIRAL PROPHYLAXIS
     Route: 048
     Dates: start: 20111127, end: 20120828
  24. TRITACE [Concomitant]
     Indication: HYPERTENSION
     Route: 048
     Dates: start: 20111117
  25. TRITACE HCT [Concomitant]
     Indication: HYPERTENSION
     Dosage: 5/25
     Route: 048
     Dates: start: 20111212
  26. XANAX [Concomitant]
     Indication: ANXIETY
     Dosage: 5/25
     Route: 048
     Dates: start: 20111117
  27. XANAX [Concomitant]
     Dosage: 5/25
     Route: 048
     Dates: start: 20120821, end: 20120902
  28. BORTEZOMIB [Concomitant]
     Indication: MULTIPLE MYELOMA
     Route: 041
     Dates: start: 20120822, end: 20120831
  29. DOXORUBICIN [Concomitant]
     Indication: MULTIPLE MYELOMA
     Dosage: 15.41 Milligram
     Route: 041
     Dates: start: 20120823, end: 20120826
  30. BRINALDIX [Concomitant]
     Indication: PROPHYLAXIS
     Dosage: 20 Milligram
     Route: 048
     Dates: start: 20120831, end: 20120901
  31. EMETRON [Concomitant]
     Indication: VOMITING
     Dosage: 16 Milligram
     Route: 041
     Dates: start: 20120830, end: 20120902
  32. FRUCTOSOL [Concomitant]
     Indication: DIARRHEA
     Dosage: 1000 Milligram/Milliliters
     Route: 041
     Dates: start: 20120828, end: 20120902
  33. IMODIUM [Concomitant]
     Indication: DIARRHEA
     Route: 048
     Dates: start: 20120828, end: 20120902
  34. KALIUM [Concomitant]
     Indication: PROPHYLAXIS
     Dosage: 2 Gram
     Route: 041
     Dates: start: 20120823, end: 20120829
  35. KLION [Concomitant]
     Indication: DIARRHEA
     Dosage: 300 Milligram/Milliliters
     Route: 041
     Dates: start: 20120828, end: 20120902
  36. MYCOSYST [Concomitant]
     Indication: PREVENTION
     Dosage: 600 Milligram
     Route: 041
     Dates: start: 20120830, end: 20120902
  37. SALSOL [Concomitant]
     Indication: PROPHYLAXIS
     Route: 041
     Dates: start: 20120823, end: 20120902

REACTIONS (1)
  - Neutropenic sepsis [Fatal]
